FAERS Safety Report 10248340 (Version 1)
Quarter: 2014Q2

REPORT INFORMATION
  Report Type: Spontaneous
  Country: US (occurrence: US)
  Receive Date: 20140620
  Receipt Date: 20140620
  Transmission Date: 20141212
  Serious: Yes (Hospitalization)
  Sender: FDA-Public Use
  Company Number: US-DRREDDYS-USA/USA/13/0035583

PATIENT
  Age: 5 Month
  Sex: Male
  Weight: 6.4 kg

DRUGS (5)
  1. TACROLIMUS [Suspect]
     Indication: PRODUCT USED FOR UNKNOWN INDICATION
     Route: 065
  2. VORICONAZOLE [Interacting]
     Indication: ASPERGILLUS INFECTION
     Route: 065
  3. VORICONAZOLE [Interacting]
     Route: 048
  4. AMPHOTERICIN B [Suspect]
     Indication: ASPERGILLUS INFECTION
     Route: 065
  5. MYCOPHENOLATE MOFETIL [Suspect]
     Indication: PRODUCT USED FOR UNKNOWN INDICATION
     Route: 065

REACTIONS (4)
  - Drug interaction [Unknown]
  - Tachycardia [Unknown]
  - Renal failure acute [Unknown]
  - Vomiting [Unknown]
